FAERS Safety Report 13020415 (Version 2)
Quarter: 2017Q1

REPORT INFORMATION
  Report Type: Spontaneous
  Country: ES (occurrence: ES)
  Receive Date: 20161212
  Receipt Date: 20170201
  Transmission Date: 20170428
  Serious: Yes (Life-Threatening)
  Sender: FDA-Public Use
  Company Number: ES-BRACCO-001593

PATIENT
  Age: 68 Year
  Sex: Male

DRUGS (9)
  1. ACETYLSALICYLIC ACID [Concomitant]
     Active Substance: ASPIRIN
     Dates: start: 2016
  2. CETUXIMAB. [Concomitant]
     Active Substance: CETUXIMAB
     Dates: start: 2016
  3. ENALAPRIL [Concomitant]
     Active Substance: ENALAPRIL
     Dates: start: 2016
  4. OMEPRAZOL [Concomitant]
     Active Substance: OMEPRAZOLE
     Dates: start: 2016
  5. PEITEL [Concomitant]
     Dates: start: 2016
  6. BISOPROLOL [Concomitant]
     Active Substance: BISOPROLOL
     Dates: start: 2016
  7. CARBOPLATINO [Concomitant]
     Active Substance: CARBOPLATIN
     Dates: start: 2016
  8. PROHANCE [Suspect]
     Active Substance: GADOTERIDOL
     Indication: NUCLEAR MAGNETIC RESONANCE IMAGING
     Route: 042
     Dates: start: 20161117, end: 20161117
  9. SIMVASTATINA [Concomitant]
     Active Substance: SIMVASTATIN
     Dates: start: 2016

REACTIONS (8)
  - Radial pulse abnormal [Recovered/Resolved]
  - Rash [Recovered/Resolved]
  - Peripheral coldness [Recovered/Resolved]
  - Bradycardia [Recovered/Resolved]
  - Hypotension [Recovered/Resolved]
  - Pallor [Recovered/Resolved]
  - Anuria [Recovered/Resolved]
  - Oxygen saturation decreased [Recovered/Resolved]

NARRATIVE: CASE EVENT DATE: 20161117
